FAERS Safety Report 17949122 (Version 1)
Quarter: 2020Q2

REPORT INFORMATION
  Report Type: Spontaneous
  Country: US (occurrence: US)
  Receive Date: 20200625
  Receipt Date: 20200625
  Transmission Date: 20200714
  Serious: No
  Sender: FDA-Public Use
  Company Number: US-ROCHE-2469142

PATIENT
  Age: 27 Year
  Sex: Male

DRUGS (10)
  1. CLONIDINE. [Concomitant]
     Active Substance: CLONIDINE
  2. DANTROLENE. [Concomitant]
     Active Substance: DANTROLENE SODIUM
  3. FLUVOXAMINE [Concomitant]
     Active Substance: FLUVOXAMINE
  4. QUETIAPINE. [Concomitant]
     Active Substance: QUETIAPINE
  5. VALPROIC ACID. [Concomitant]
     Active Substance: VALPROIC ACID
  6. HALOPERIDOL. [Concomitant]
     Active Substance: HALOPERIDOL
  7. TRAZODONE [Concomitant]
     Active Substance: TRAZODONE HYDROCHLORIDE
  8. CLONAZEPAM. [Suspect]
     Active Substance: CLONAZEPAM
     Indication: CATATONIA
     Route: 065
  9. BUSPIRONE [Concomitant]
     Active Substance: BUSPIRONE HYDROCHLORIDE
  10. OXCARBAZEPINE. [Concomitant]
     Active Substance: OXCARBAZEPINE

REACTIONS (2)
  - Drug ineffective [Unknown]
  - No adverse event [Unknown]
